FAERS Safety Report 4745792-7 (Version None)
Quarter: 2005Q3

REPORT INFORMATION
  Report Type: 
  Country: None (occurrence: None)
  Receive Date: 20050815
  Receipt Date: 20050815
  Transmission Date: 20060218
  Serious: Yes (Hospitalization)
  Sender: FDA-Public Use
  Company Number: None

PATIENT
  Age: 28 Year
  Sex: Male
  Weight: 90.9 kg

DRUGS (2)
  1. ZOCOR [Suspect]
     Indication: BLOOD CHOLESTEROL INCREASED
     Dosage: 20MG  DAILY  ORAL
     Route: 048
     Dates: start: 20050728, end: 20050809
  2. ZOCOR [Suspect]
     Indication: HYPERLIPIDAEMIA
     Dosage: 20MG  DAILY  ORAL
     Route: 048
     Dates: start: 20050728, end: 20050809

REACTIONS (1)
  - RHABDOMYOLYSIS [None]
